FAERS Safety Report 4703619-3 (Version None)
Quarter: 2005Q2

REPORT INFORMATION
  Report Type: 
  Country: None (occurrence: None)
  Receive Date: 20050628
  Receipt Date: 20050609
  Transmission Date: 20051028
  Serious: Yes (Other)
  Sender: FDA-Public Use
  Company Number: 2005BL002532

PATIENT
  Age: 20 Year
  Sex: Male
  Weight: 88.4514 kg

DRUGS (5)
  1. PILOCARPINE HYDROCHLORIDE [Suspect]
     Indication: EYE OPERATION COMPLICATION
     Dosage: 2 DROP; TWICE A DAY; OPHTHALMIC
     Route: 047
     Dates: start: 20041006, end: 20041001
  2. PILOCARPINE HYDROCHLORIDE [Suspect]
     Indication: GLARE
     Dosage: 2 DROP; TWICE A DAY; OPHTHALMIC
     Route: 047
     Dates: start: 20041006, end: 20041001
  3. PILOCARPINE HYDROCHLORIDE [Suspect]
     Indication: EYE OPERATION COMPLICATION
     Dosage: 2 DROP; TWICE A DAY; OPHTHALMIC
     Route: 047
     Dates: start: 20041001, end: 20050401
  4. PILOCARPINE HYDROCHLORIDE [Suspect]
     Indication: GLARE
     Dosage: 2 DROP; TWICE A DAY; OPHTHALMIC
     Route: 047
     Dates: start: 20041001, end: 20050401
  5. ALPHAGAN P [Concomitant]

REACTIONS (11)
  - BRADYPHRENIA [None]
  - CONFUSIONAL STATE [None]
  - DISTURBANCE IN ATTENTION [None]
  - MIOSIS [None]
  - MYOPIA [None]
  - PHOTOPSIA [None]
  - PUPILLARY DISORDER [None]
  - PUPILS UNEQUAL [None]
  - RETINAL DISORDER [None]
  - VISION BLURRED [None]
  - VITREOUS FLOATERS [None]
